FAERS Safety Report 14857012 (Version 1)
Quarter: 2018Q2

REPORT INFORMATION
  Report Type: Report from Study
  Country: JP (occurrence: JP)
  Receive Date: 20180507
  Receipt Date: 20180507
  Transmission Date: 20180711
  Serious: Yes (Hospitalization, Other)
  Sender: FDA-Public Use
  Company Number: JP-GILEAD-2013-0082038

PATIENT
  Age: 36 Year
  Sex: Male

DRUGS (24)
  1. GLAKAY [Concomitant]
     Active Substance: MENATETRENONE
     Indication: PRODUCT USED FOR UNKNOWN INDICATION
     Dosage: UNK UNKNOWN, UNK
     Dates: start: 20040906
  2. NORVIR [Suspect]
     Active Substance: RITONAVIR
     Indication: HIV INFECTION
     Dosage: 200 MG, UNK
     Route: 048
     Dates: start: 20070410, end: 20090407
  3. NORVIR [Suspect]
     Active Substance: RITONAVIR
     Dosage: 100 MG, QD
     Route: 048
     Dates: start: 20090408, end: 20090512
  4. LEXIVA [Suspect]
     Active Substance: FOSAMPRENAVIR CALCIUM
     Indication: HIV INFECTION
     Dosage: 1400 MG, QD
     Route: 048
     Dates: start: 20070410, end: 20090407
  5. REBETOL [Concomitant]
     Active Substance: RIBAVIRIN
     Indication: PRODUCT USED FOR UNKNOWN INDICATION
     Dosage: UNK
     Dates: start: 20020423
  6. LOXONIN [Concomitant]
     Active Substance: LOXOPROFEN SODIUM
     Indication: PRODUCT USED FOR UNKNOWN INDICATION
     Dosage: UNK
     Dates: start: 200204
  7. URSO [Concomitant]
     Active Substance: URSODIOL
     Indication: PRODUCT USED FOR UNKNOWN INDICATION
     Dosage: UNK UNKNOWN, UNK
     Dates: start: 20041105
  8. AMINOLEBAN                         /01982601/ [Concomitant]
     Active Substance: AMINO ACIDS
     Indication: HEPATIC FAILURE
     Dosage: UNK UNKNOWN, UNK
     Dates: start: 20071029, end: 20080106
  9. LEXIVA [Suspect]
     Active Substance: FOSAMPRENAVIR CALCIUM
     Dosage: 1400 MG, QD
     Route: 048
     Dates: start: 20090513
  10. URSO [Concomitant]
     Active Substance: URSODIOL
     Dosage: UNK
  11. AMIPHARGEN P [Concomitant]
     Dosage: UNK UNKNOWN, UNK
     Dates: start: 20120413
  12. CRAVIT [Concomitant]
     Active Substance: LEVOFLOXACIN
     Indication: PRODUCT USED FOR UNKNOWN INDICATION
     Dosage: UNK UNKNOWN, UNK
     Dates: start: 20120608, end: 20120617
  13. NEOPHAGEN                          /00467204/ [Concomitant]
     Active Substance: CYSTEINE\GLYCINE\GLYCYRRHIZIN
     Indication: PRODUCT USED FOR UNKNOWN INDICATION
     Dosage: UNK UNKNOWN, UNK
     Dates: start: 20060626, end: 20110418
  14. AMINOLEBAN                         /01982601/ [Concomitant]
     Active Substance: AMINO ACIDS
     Dosage: UNK UNKNOWN, UNK
     Dates: start: 20080108, end: 20090825
  15. NOVAMIN                            /00013301/ [Concomitant]
     Active Substance: PROCHLORPERAZINE
     Indication: PRODUCT USED FOR UNKNOWN INDICATION
     Dosage: UNK UNKNOWN, UNK
     Dates: start: 20130308, end: 20130314
  16. EMTRICITABINE/TENOFOVIR DISOPROXIL FUMARATE [Suspect]
     Active Substance: EMTRICITABINE\TENOFOVIR DISOPROXIL FUMARATE
     Indication: HIV INFECTION
     Dosage: 1 DF, QD
     Route: 048
     Dates: start: 20070410
  17. NORVIR [Suspect]
     Active Substance: RITONAVIR
     Dosage: 200 MG, QD
     Route: 048
     Dates: start: 20090513, end: 20120229
  18. NORVIR [Suspect]
     Active Substance: RITONAVIR
     Dosage: 100 MG, QD
     Route: 048
     Dates: start: 20120301
  19. LEXIVA [Suspect]
     Active Substance: FOSAMPRENAVIR CALCIUM
     Dosage: 700 MG, QD
     Route: 048
     Dates: start: 20090408, end: 20090512
  20. TRAMCET [Concomitant]
     Active Substance: ACETAMINOPHEN\TRAMADOL
     Indication: PRODUCT USED FOR UNKNOWN INDICATION
     Dosage: UNK UNKNOWN, UNK
     Dates: start: 20130308, end: 20130314
  21. AMIPHARGEN P [Concomitant]
     Indication: PRODUCT USED FOR UNKNOWN INDICATION
     Dosage: UNK
     Dates: start: 20110422, end: 20120410
  22. LIVACT                             /00847901/ [Concomitant]
     Active Substance: ISOLEUCINE\LEUCINE\VALINE
     Indication: PRODUCT USED FOR UNKNOWN INDICATION
     Dosage: UNK UNKNOWN, UNK
     Dates: start: 20111024, end: 20121213
  23. KOGENATE [Concomitant]
     Active Substance: ANTIHEMOPHILIC FACTOR, HUMAN RECOMBINANT
     Indication: PRODUCT USED FOR UNKNOWN INDICATION
     Dosage: UNK UNKNOWN, UNK
  24. PARIET [Concomitant]
     Active Substance: RABEPRAZOLE SODIUM
     Indication: PRODUCT USED FOR UNKNOWN INDICATION
     Dosage: UNK UNKNOWN, UNK
     Dates: start: 20080408

REACTIONS (7)
  - Hyperbilirubinaemia [Unknown]
  - Haemophilic arthropathy [Recovering/Resolving]
  - Duodenitis [Not Recovered/Not Resolved]
  - Cholelithiasis [Not Recovered/Not Resolved]
  - Injury [Recovering/Resolving]
  - Osteoporotic fracture [Recovering/Resolving]
  - Chronic gastritis [Not Recovered/Not Resolved]

NARRATIVE: CASE EVENT DATE: 20070412
